FAERS Safety Report 25211954 (Version 1)
Quarter: 2025Q2

REPORT INFORMATION
  Report Type: Spontaneous
  Country: US (occurrence: US)
  Receive Date: 20250418
  Receipt Date: 20250418
  Transmission Date: 20250716
  Serious: Yes (Hospitalization)
  Sender: MERCK SHARP & DOHME LLC
  Company Number: US-009507513-2277347

PATIENT
  Age: 59 Year
  Sex: Male

DRUGS (2)
  1. BRIDION [Suspect]
     Active Substance: SUGAMMADEX SODIUM
     Indication: Neuromuscular blockade reversal
     Dates: start: 20250316
  2. ROCURONIUM [Suspect]
     Active Substance: ROCURONIUM BROMIDE
     Dates: start: 20250316

REACTIONS (3)
  - Amnesia [Not Recovered/Not Resolved]
  - Anaphylactic reaction [Recovered/Resolved]
  - Cardiac arrest [Recovered/Resolved]

NARRATIVE: CASE EVENT DATE: 20250301
